FAERS Safety Report 7638110-8 (Version None)
Quarter: 2011Q3

REPORT INFORMATION
  Report Type: 
  Country: None (occurrence: None)
  Receive Date: 20110720
  Receipt Date: 20110706
  Transmission Date: 20111222
  Serious: Yes (Hospitalization)
  Sender: FDA-Public Use
  Company Number: 2011P1007567

PATIENT
  Age: 83 Year
  Sex: Male
  Weight: 63.5036 kg

DRUGS (1)
  1. FENTANYL [Suspect]
     Indication: PAIN
     Dosage: 50 MCG/HR;Q3D;TDER
     Route: 062
     Dates: start: 20110601

REACTIONS (3)
  - ACCIDENTAL EXPOSURE [None]
  - WRONG TECHNIQUE IN DRUG USAGE PROCESS [None]
  - DEVICE LEAKAGE [None]
